FAERS Safety Report 11159230 (Version 1)
Quarter: 2015Q2

REPORT INFORMATION
  Report Type: Spontaneous
  Country: GB (occurrence: GB)
  Receive Date: 20150603
  Receipt Date: 20150603
  Transmission Date: 20150821
  Serious: Yes (Other)
  Sender: FDA-Public Use
  Company Number: PHHY2015GB065714

PATIENT
  Age: 15 Year
  Weight: 66 kg

DRUGS (8)
  1. MIDAZOLAM [Suspect]
     Active Substance: MIDAZOLAM\MIDAZOLAM HYDROCHLORIDE
     Indication: SEDATIVE THERAPY
     Route: 065
  2. HALOPERIDOL. [Concomitant]
     Active Substance: HALOPERIDOL
     Indication: SEDATIVE THERAPY
     Route: 065
  3. FENTANYL. [Suspect]
     Active Substance: FENTANYL
     Indication: SEDATIVE THERAPY
     Route: 065
  4. ALIMEMAZINE [Concomitant]
     Active Substance: TRIMEPRAZINE
     Indication: SEDATIVE THERAPY
     Route: 065
  5. LORAZEPAM. [Suspect]
     Active Substance: LORAZEPAM
     Indication: SEDATIVE THERAPY
     Route: 042
  6. TRICLOFOS [Concomitant]
     Active Substance: TRICLOFOS
     Indication: SEDATIVE THERAPY
     Route: 065
  7. CLONIDINE. [Concomitant]
     Active Substance: CLONIDINE
     Indication: SEDATIVE THERAPY
     Route: 065
  8. MORPHINE [Suspect]
     Active Substance: MORPHINE
     Indication: SEDATIVE THERAPY
     Route: 042

REACTIONS (3)
  - Agitation [Recovered/Resolved]
  - Withdrawal syndrome [Unknown]
  - Aggression [Recovered/Resolved]
